FAERS Safety Report 5998625-5 (Version None)
Quarter: 2008Q4

REPORT INFORMATION
  Report Type: 
  Country: None (occurrence: None)
  Receive Date: 20081213
  Receipt Date: 20080714
  Transmission Date: 20090506
  Serious: No
  Sender: FDA-Public Use
  Company Number: US-AMGEN-KDL291945

PATIENT
  Sex: Male

DRUGS (5)
  1. ENBREL [Suspect]
     Indication: RHEUMATOID ARTHRITIS
     Route: 030
     Dates: start: 20071001
  2. METHOTREXATE [Concomitant]
     Dates: start: 20000901
  3. PLAQUENIL [Concomitant]
     Dates: start: 20000701
  4. FOLIC ACID [Concomitant]
     Dates: start: 20000901
  5. VOLTAREN [Concomitant]
     Dates: start: 20080301

REACTIONS (2)
  - INJECTION SITE ANAESTHESIA [None]
  - INJECTION SITE IRRITATION [None]
